FAERS Safety Report 15753666 (Version 1)
Quarter: 2018Q4

REPORT INFORMATION
  Report Type: Spontaneous
  Country: GB (occurrence: GB)
  Receive Date: 20181222
  Receipt Date: 20181222
  Transmission Date: 20190205
  Serious: Yes (Life-Threatening, Other)
  Sender: FDA-Public Use
  Company Number: GB-ACCORD-096860

PATIENT
  Sex: Male

DRUGS (1)
  1. LEVETIRACETAM. [Suspect]
     Active Substance: LEVETIRACETAM
     Indication: EPILEPSY
     Route: 065

REACTIONS (6)
  - Cardiac arrest [Unknown]
  - Staring [Not Recovered/Not Resolved]
  - Dizziness [Not Recovered/Not Resolved]
  - Epilepsy [Unknown]
  - Loss of consciousness [Unknown]
  - Feeling drunk [Not Recovered/Not Resolved]
